FAERS Safety Report 4373622-4 (Version None)
Quarter: 2004Q1

REPORT INFORMATION
  Report Type: 
  Country: None (occurrence: None)
  Receive Date: 20040305
  Receipt Date: 20031230
  Transmission Date: 20041129
  Serious: Yes (Other)
  Sender: FDA-Public Use
  Company Number: 2003UW17308

PATIENT
  Age: 45 Year
  Sex: Female
  Weight: 71.6683 kg

DRUGS (4)
  1. CRESTOR [Suspect]
     Indication: ATRIOVENTRICULAR BLOCK
     Dosage: 10 MG PO
     Route: 048
  2. INSULIN [Concomitant]
  3. ASPIRIN [Concomitant]
  4. DIOVAN [Concomitant]

REACTIONS (3)
  - ABNORMAL DREAMS [None]
  - AGITATION [None]
  - MYALGIA [None]
